FAERS Safety Report 7789481-3 (Version None)
Quarter: 2011Q3

REPORT INFORMATION
  Report Type: 
  Country: None (occurrence: None)
  Receive Date: 20110930
  Receipt Date: 20110920
  Transmission Date: 20111222
  Serious: Yes (Hospitalization)
  Sender: FDA-Public Use
  Company Number: US-JNJFOC-20110909724

PATIENT
  Sex: Female
  Weight: 2.58 kg

DRUGS (4)
  1. PHENOBARBITAL TAB [Suspect]
     Indication: CONVULSION
     Route: 065
  2. VALPROIC ACID [Suspect]
     Indication: CONVULSION
     Route: 065
  3. TOPIRAMATE [Suspect]
     Indication: CONVULSION
     Route: 048
  4. DIAZEPAM [Suspect]
     Indication: CONVULSION
     Route: 065

REACTIONS (3)
  - CONVULSION [None]
  - DRUG ADMINISTERED TO PATIENT OF INAPPROPRIATE AGE [None]
  - MYOCLONUS [None]
